FAERS Safety Report 9321233 (Version 1)
Quarter: 2013Q2

REPORT INFORMATION
  Report Type: Spontaneous
  Country: DE (occurrence: None)
  Receive Date: 20130528
  Receipt Date: 20130528
  Transmission Date: 20140414
  Serious: Yes (Congenital Anomaly, Other)
  Sender: FDA-Public Use
  Company Number: GER/GER/13/0029585

PATIENT
  Sex: Male
  Weight: 4.12 kg

DRUGS (4)
  1. VENLAFAXINE (VENLAFAXINE) [Suspect]
     Indication: PRODUCT USED FOR UNKNOWN INDICATION
     Dosage: 1 D
     Route: 064
     Dates: start: 20111102, end: 20111127
  2. QUILONORM RETARD [Suspect]
     Indication: PRODUCT USED FOR UNKNOWN INDICATION
     Dosage: 1 D
     Route: 064
     Dates: start: 20111102, end: 201205
  3. SEROQUEL [Suspect]
     Indication: PRODUCT USED FOR UNKNOWN INDICATION
     Dosage: 1 D
     Route: 064
     Dates: start: 20111102, end: 20121127
  4. FOLSAURE (FOLIC ACID) [Concomitant]

REACTIONS (9)
  - Neonatal respiratory distress syndrome [None]
  - Bundle branch block right [None]
  - Ventricular hypertrophy [None]
  - Drug withdrawal syndrome neonatal [None]
  - Congenital anomaly [None]
  - Congenital hydronephrosis [None]
  - Pulmonary hypertension [None]
  - Large for dates baby [None]
  - Maternal drugs affecting foetus [None]
